FAERS Safety Report 5339051-1 (Version None)
Quarter: 2007Q2

REPORT INFORMATION
  Report Type: 
  Country: None (occurrence: None)
  Receive Date: 20070330
  Receipt Date: 20060919
  Transmission Date: 20071010
  Serious: No
  Sender: FDA-Public Use
  Company Number: 2006UW18291

PATIENT
  Sex: Male

DRUGS (2)
  1. LISINOPRIL [Suspect]
     Dosage: 5 MG PO
     Route: 048
  2. TOPROL-XL [Suspect]
     Dosage: 25 MG PO
     Route: 048

REACTIONS (1)
  - MYOCARDIAL INFARCTION [None]
